FAERS Safety Report 7209194-6 (Version None)
Quarter: 2011Q1

REPORT INFORMATION
  Report Type: 
  Country: None (occurrence: None)
  Receive Date: 20110104
  Receipt Date: 20101216
  Transmission Date: 20110831
  Serious: Yes (Hospitalization, Congenital Anomaly)
  Sender: FDA-Public Use
  Company Number: A0681659A

PATIENT
  Sex: Male

DRUGS (6)
  1. PAXIL [Suspect]
     Indication: DEPRESSION
     Dosage: 20MG PER DAY
     Dates: start: 19981101, end: 19990101
  2. EFFEXOR [Concomitant]
  3. AMPICILLIN [Concomitant]
  4. ZOLOFT [Concomitant]
  5. PRENATAL VITAMINS [Concomitant]
  6. DEPAKOTE [Concomitant]

REACTIONS (9)
  - ATRIAL SEPTAL DEFECT [None]
  - DRUG EXPOSURE DURING PREGNANCY [None]
  - VENTRICULAR SEPTAL DEFECT [None]
  - DOUBLE OUTLET RIGHT VENTRICLE [None]
  - DYSMORPHISM [None]
  - MICROCEPHALY [None]
  - CONGENITAL CYSTIC KIDNEY DISEASE [None]
  - RENAL APLASIA [None]
  - TESTICULAR DISORDER [None]
